FAERS Safety Report 8770908 (Version 1)
Quarter: 2012Q4

REPORT INFORMATION
  Report Type: 
  Country: US (occurrence: US)
  Receive Date: 20120906
  Receipt Date: 20120906
  Transmission Date: 20130627
  Serious: Yes (Hospitalization)
  Sender: FDA-Public Use
  Company Number: US-BAYER-2012-091265

PATIENT
  Age: 38 Year
  Sex: Female
  Weight: 69 kg

DRUGS (15)
  1. YAZ [Suspect]
     Dosage: UNK
  2. GIANVI [Suspect]
     Dosage: UNK
  3. YASMIN [Suspect]
     Dosage: UNK
  4. TYLENOL [Concomitant]
     Indication: PYREXIA
     Dosage: UNK
  5. AMOXICILLIN [Concomitant]
     Dosage: 500 mg, UNK
     Dates: start: 20110517
  6. ADDERALL XR [Concomitant]
     Dosage: 30 mg, UNK
     Dates: start: 20110517
  7. ADDERALL XR [Concomitant]
     Dosage: 20 mg, UNK
     Dates: start: 20110705
  8. CEPHALEXIN [Concomitant]
     Dosage: 500 mg, UNK
     Dates: start: 20110801
  9. PROMETHAZINE [Concomitant]
     Dosage: 25 mg, UNK
     Dates: start: 20110801
  10. CYCLOBENZAPRINE [Concomitant]
     Dosage: 10 mg, UNK
     Dates: start: 20110801
  11. ACETAMINOPHEN W/OXYCODONE [Concomitant]
     Dosage: UNK
     Dates: start: 20110801
  12. ACETAMINOPHEN [Concomitant]
     Indication: PAIN
     Dosage: 325 mg, 2 tablets every 4 hours as needed
     Route: 048
  13. ROXICODONE [Concomitant]
     Indication: PAIN
     Dosage: 5 mg, 1 tablet every 4 hours as needed
     Route: 048
  14. MORPHINE [Concomitant]
     Dosage: UNK
  15. OXYCODONE [Concomitant]
     Indication: PAIN MANAGEMENT
     Dosage: UNK

REACTIONS (1)
  - Pulmonary embolism [None]
